FAERS Safety Report 5299979-8 (Version None)
Quarter: 2007Q2

REPORT INFORMATION
  Report Type: 
  Country: None (occurrence: None)
  Receive Date: 20070410
  Receipt Date: 20070307
  Transmission Date: 20071010
  Serious: Yes (Other)
  Sender: FDA-Public Use
  Company Number: B0464749A

PATIENT

DRUGS (1)
  1. ADVAIR (FORMULATION UNKNOWN) (FLUTICASONE+SALMETEROL) [Suspect]
     Indication: DRUG USE FOR UNKNOWN INDICATION
     Dosage: INHALED
     Route: 055

REACTIONS (1)
  - HALLUCINATION [None]
